FAERS Safety Report 8990779 (Version 1)
Quarter: 2012Q4

REPORT INFORMATION
  Report Type: Spontaneous
  Country: US (occurrence: None)
  Receive Date: 20121226
  Receipt Date: 20121226
  Transmission Date: 20130627
  Serious: No
  Sender: FDA-Public Use
  Company Number: None

PATIENT
  Age: 62 Year
  Sex: Female

DRUGS (3)
  1. REVLIMID [Suspect]
     Indication: MULTIPLE MYELOMA
     Dosage: Revlimid 25 mg daily x21d/28d orally
     Route: 048
  2. ZOLPIDEM [Concomitant]
  3. OXYCODONE/APAP [Concomitant]

REACTIONS (1)
  - Colitis ischaemic [None]
